FAERS Safety Report 8859238 (Version 1)
Quarter: 2012Q4

REPORT INFORMATION
  Report Type: Spontaneous
  Country: GB (occurrence: None)
  Receive Date: 20121023
  Receipt Date: 20121023
  Transmission Date: 20130627
  Serious: Yes (Life-Threatening)
  Sender: FDA-Public Use
  Company Number: GER/UKI/12/0026259

PATIENT
  Age: 89 Year
  Sex: Male

DRUGS (4)
  1. RISPERIDONE [Suspect]
     Indication: DRUG USE FOR UNKNOWN INDICATION
     Route: 048
     Dates: start: 20120906, end: 20120907
  2. DONEPEZIL [Concomitant]
  3. MESALAZINE [Concomitant]
  4. ZOPICLONE [Concomitant]

REACTIONS (3)
  - Electrocardiogram QT prolonged [None]
  - Coma scale abnormal [None]
  - Unresponsive to stimuli [None]
